FAERS Safety Report 7725812-8 (Version None)
Quarter: 2011Q3

REPORT INFORMATION
  Report Type: 
  Country: None (occurrence: None)
  Receive Date: 20110902
  Receipt Date: 20110823
  Transmission Date: 20111222
  Serious: Yes (Other)
  Sender: FDA-Public Use
  Company Number: US-UCBSA-040076

PATIENT
  Sex: Male
  Weight: 63.5 kg

DRUGS (3)
  1. TOPAMAX [Concomitant]
     Dates: start: 20110501
  2. KEPPRA XR [Suspect]
     Dates: start: 20110101
  3. VIMPAT [Suspect]
     Dosage: 100 MG IN AM AND PM
     Dates: start: 20110801

REACTIONS (4)
  - NAUSEA [None]
  - LEARNING DISABILITY [None]
  - SOMNOLENCE [None]
  - BRADYPHRENIA [None]
